FAERS Safety Report 24114209 (Version 1)
Quarter: 2024Q3

REPORT INFORMATION
  Report Type: Report from Study
  Country: US (occurrence: US)
  Receive Date: 20240720
  Receipt Date: 20240720
  Transmission Date: 20241017
  Serious: Yes (Hospitalization, Other)
  Sender: BAXTER
  Company Number: US-BAXTER-2024BAX021421

PATIENT
  Age: 30 Year
  Sex: Male
  Weight: 120.7 kg

DRUGS (5)
  1. CYCLOPHOSPHAMIDE [Suspect]
     Active Substance: CYCLOPHOSPHAMIDE
     Indication: Peripheral T-cell lymphoma unspecified
     Dosage: 750 MG/M2 EVERY 3 WEEKS (750 MG/M2, Q3WEEKS, LAST TOTAL DOSE PRIOR TO THE EVENT ONSET 2020 MG), DOSA
     Route: 042
     Dates: start: 20190216
  2. DOXORUBICIN [Suspect]
     Active Substance: DOXORUBICIN
     Indication: Peripheral T-cell lymphoma unspecified
     Dosage: 50 MG/M2 EVERY 3 WEEKS (LAST TOTAL DOSE PRIOR TO THE EVENT ONSET 134 MG), DOSAGE FORM: POWDER FOR SO
     Route: 042
     Dates: start: 20190216
  3. BRENTUXIMAB VEDOTIN [Suspect]
     Active Substance: BRENTUXIMAB VEDOTIN
     Indication: Peripheral T-cell lymphoma unspecified
     Dosage: 1.8 MG/KG EVERY 3 WEEKS (LAST TOTAL DOSE PRIOR TO THE EVENT ONSET 180 MG), ONGOING, AS A PART OF CHE
     Route: 042
     Dates: start: 20190216
  4. ETOPOSIDE [Suspect]
     Active Substance: ETOPOSIDE
     Indication: Peripheral T-cell lymphoma unspecified
     Dosage: 100 MG/M2, CYCLIC, ON DAY 1-3 EVERY 21 DAYS, LAST TOTAL DOSE 270 MG
     Route: 042
     Dates: start: 20190216, end: 20190524
  5. PREDNISONE [Suspect]
     Active Substance: PREDNISONE
     Indication: Peripheral T-cell lymphoma unspecified
     Dosage: 100 MG, CYCLIC, ON DAY 1-5 EVERY 3 WEEKS, LAST TOTAL DOSE 100 MG, AS A PART OF CHEP-BV (C1 D1) REGIM
     Route: 048
     Dates: start: 20190216, end: 20190526

REACTIONS (1)
  - Clostridium difficile infection [Recovered/Resolved]

NARRATIVE: CASE EVENT DATE: 20190603
